FAERS Safety Report 5476536-1 (Version None)
Quarter: 2007Q3

REPORT INFORMATION
  Report Type: 
  Country: None (occurrence: None)
  Receive Date: 20070926
  Receipt Date: 20070516
  Transmission Date: 20080115
  Serious: Yes (Hospitalization, Other)
  Sender: FDA-Public Use
  Company Number: 2007039491

PATIENT
  Age: 5 Year
  Sex: Male

DRUGS (4)
  1. ZYRTEC [Suspect]
     Indication: HYPERSENSITIVITY
     Dosage: (EVERYDAY)
     Dates: start: 20050624, end: 20060501
  2. ZYRTEC [Suspect]
     Indication: HYPERSENSITIVITY
     Dosage: 10 MG (5 MG, BID EVERYDAY)
     Dates: start: 20060501, end: 20060501
  3. ZYRTEC [Suspect]
     Indication: HYPERSENSITIVITY
     Dosage: 10 MG (10 MG, QD EVERYDAY)
     Dates: start: 20070501
  4. ALL OTHER THERAPEUTIC PRODUCTS (ALL OTHER THERAPEUTIC PRODUCTS) [Concomitant]

REACTIONS (5)
  - LOSS OF CONSCIOUSNESS [None]
  - OVERDOSE [None]
  - SLEEP DISORDER [None]
  - UNRESPONSIVE TO STIMULI [None]
  - VOMITING [None]
